FAERS Safety Report 26043342 (Version 1)
Quarter: 2025Q4

REPORT INFORMATION
  Report Type: Spontaneous
  Country: CH (occurrence: CH)
  Receive Date: 20251113
  Receipt Date: 20251113
  Transmission Date: 20260118
  Serious: Yes (Other)
  Sender: JOHNSON AND JOHNSON
  Company Number: CH-JNJFOC-20251147811

PATIENT
  Sex: Male

DRUGS (1)
  1. AMIVANTAMAB [Suspect]
     Active Substance: AMIVANTAMAB
     Indication: Product used for unknown indication
     Dosage: SECOND LINE
     Route: 065

REACTIONS (4)
  - Pruritus [Recovered/Resolved]
  - Dermatitis acneiform [Recovered/Resolved]
  - Pain of skin [Recovered/Resolved]
  - Nail infection [Unknown]

NARRATIVE: CASE EVENT DATE: 20250601
